FAERS Safety Report 9335627 (Version 1)
Quarter: 2013Q2

REPORT INFORMATION
  Report Type: Spontaneous
  Country: IT (occurrence: IT)
  Receive Date: 20130605
  Receipt Date: 20130605
  Transmission Date: 20140414
  Serious: Yes (Death)
  Sender: FDA-Public Use
  Company Number: IT-TEVA-409193ISR

PATIENT
  Age: 67 Year
  Sex: Male

DRUGS (4)
  1. GEMCITABINE [Suspect]
     Indication: NON-SMALL CELL LUNG CANCER
     Dosage: 1700 MILLIGRAM DAILY; POWDER FOR SOLUTION FOR INTRAVENOUS INFUSION
     Route: 042
     Dates: start: 20130514, end: 20130514
  2. PLASIL [Concomitant]
     Indication: PROPHYLAXIS
     Dosage: 10 MILLIGRAM DAILY;
  3. DESAMETASONE [Concomitant]
     Dosage: 4 MILLIGRAM DAILY;
  4. RANITIDINA [Concomitant]
     Dosage: 1 DOSAGE FORMS DAILY;

REACTIONS (5)
  - Hepatorenal syndrome [Fatal]
  - Hypotension [Fatal]
  - Transaminases increased [Fatal]
  - Hypercreatininaemia [Fatal]
  - Loss of consciousness [Fatal]
